FAERS Safety Report 16492891 (Version 1)
Quarter: 2019Q2

REPORT INFORMATION
  Report Type: Spontaneous
  Country: US (occurrence: US)
  Receive Date: 20190520
  Receipt Date: 20190520
  Transmission Date: 20190711
  Serious: Yes (Hospitalization, Other)
  Sender: FDA-Public Use
  Company Number: None

PATIENT
  Age: 71 Year
  Sex: Female

DRUGS (14)
  1. POT CL MICRO TAB [Concomitant]
  2. SINGULAIR TAB [Concomitant]
  3. PREDNISONE TAB [Concomitant]
     Active Substance: PREDNISONE
  4. VIT D3 DROPS LIQ [Concomitant]
  5. LASIX TAB [Concomitant]
  6. METOPROLOL SUC TAB [Concomitant]
  7. PROLIA [Concomitant]
     Active Substance: DENOSUMAB
  8. DIGOXIN TAB [Concomitant]
  9. GABAPENTIN CAP [Concomitant]
  10. PRANDIN TAB [Concomitant]
  11. XYZAL TAB [Concomitant]
  12. ESBRIET [Suspect]
     Active Substance: PIRFENIDONE
     Indication: IDIOPATHIC PULMONARY FIBROSIS
     Dosage: ?          OTHER DOSE:1 T;?
     Route: 048
     Dates: start: 20190227
  13. LETROZOLE TAB [Concomitant]
     Active Substance: LETROZOLE
  14. ASPIRIN LOW TAB [Concomitant]

REACTIONS (1)
  - Dyspnoea [None]

NARRATIVE: CASE EVENT DATE: 201904
